FAERS Safety Report 19069033 (Version 1)
Quarter: 2021Q1

REPORT INFORMATION
  Report Type: Spontaneous
  Country: US (occurrence: US)
  Receive Date: 20210329
  Receipt Date: 20210329
  Transmission Date: 20210420
  Serious: Yes (Life-Threatening, Hospitalization)
  Sender: FDA-Public Use
  Company Number: None

PATIENT
  Age: 70 Year
  Sex: Male
  Weight: 74 kg

DRUGS (1)
  1. ROSUVASTATIN (ROSUVASTATIN CA 40MG TAB) [Suspect]
     Active Substance: ROSUVASTATIN CALCIUM
     Indication: HYPERLIPIDAEMIA
     Route: 048
     Dates: start: 20201105, end: 20201208

REACTIONS (6)
  - Acute kidney injury [None]
  - Liver function test increased [None]
  - Rhabdomyolysis [None]
  - Immune-mediated myositis [None]
  - Asthenia [None]
  - Dialysis [None]

NARRATIVE: CASE EVENT DATE: 20201208
